FAERS Safety Report 4265858-8 (Version None)
Quarter: 2004Q1

REPORT INFORMATION
  Report Type: 
  Country: None (occurrence: None)
  Receive Date: 20040107
  Receipt Date: 20031119
  Transmission Date: 20041129
  Serious: Yes (Other)
  Sender: FDA-Public Use
  Company Number: PHEH2003US10795

PATIENT
  Age: 73 Year
  Sex: Male

DRUGS (19)
  1. ZOMETA [Suspect]
     Indication: METASTASES TO BONE
     Dosage: 4 MG, QMO
     Route: 042
     Dates: start: 20020712
  2. CHEMOTHERAPEUTICS,OTHER [Concomitant]
  3. PREVACID [Concomitant]
     Dosage: 30 MG, QD
  4. ALPRAZOLAM [Concomitant]
     Dosage: 25 MG, TID
  5. DOCUSATE [Concomitant]
     Dosage: 240 MG, QD
  6. ASPIRIN [Concomitant]
     Dosage: 81 MG, QD
  7. CENTRUM [Concomitant]
  8. PAXIL [Concomitant]
     Dosage: 20 MG, QD
  9. LORATADINE [Concomitant]
     Dosage: 10 MG, QD
  10. HYDROCODONE BITARTRATE [Concomitant]
  11. FEOSOL [Concomitant]
     Dosage: 65 MG, QD
  12. WARFARIN SODIUM [Concomitant]
     Dosage: 4 MG, QD
  13. LUPRON [Concomitant]
  14. PROCRIT [Concomitant]
  15. TAXOTERE [Concomitant]
  16. EMCYT [Concomitant]
  17. DEXAMETHASONE [Concomitant]
  18. DILANTIN [Concomitant]
  19. LEXAPRO [Concomitant]

REACTIONS (6)
  - BONE DEBRIDEMENT [None]
  - IMPAIRED HEALING [None]
  - OSTEOMYELITIS [None]
  - OSTEONECROSIS [None]
  - PRIMARY SEQUESTRUM [None]
  - TOOTH EXTRACTION [None]
